FAERS Safety Report 6538574-7 (Version None)
Quarter: 2010Q1

REPORT INFORMATION
  Report Type: 
  Country: None (occurrence: None)
  Receive Date: 20100113
  Receipt Date: 20100113
  Transmission Date: 20100710
  Serious: Yes (Life-Threatening, Other)
  Sender: FDA-Public Use
  Company Number: None

PATIENT
  Age: 44 Year
  Sex: Male
  Weight: 135.1719 kg

DRUGS (1)
  1. IMURAN [Suspect]

REACTIONS (3)
  - B-CELL LYMPHOMA [None]
  - DRUG INEFFECTIVE [None]
  - PNEUMONIA [None]
